FAERS Safety Report 6862985-3 (Version None)
Quarter: 2010Q3

REPORT INFORMATION
  Report Type: 
  Country: None (occurrence: None)
  Receive Date: 20100719
  Receipt Date: 20100702
  Transmission Date: 20110219
  Serious: Yes (Hospitalization)
  Sender: FDA-Public Use
  Company Number: 2010002691

PATIENT
  Age: 59 Year
  Sex: Male

DRUGS (4)
  1. TARCEVA [Suspect]
     Indication: BRONCHIAL CARCINOMA
     Dosage: 150 MG, QD, ORAL
     Route: 048
     Dates: start: 20090501
  2. XATRAL (ALFUZOSIN) [Concomitant]
  3. NICARDIPINE HCL [Concomitant]
  4. TRAMADOL HCL [Concomitant]

REACTIONS (5)
  - BILE DUCT OBSTRUCTION [None]
  - DRY EYE [None]
  - ERYTHEMA [None]
  - FOLLICULITIS [None]
  - ONYCHOMYCOSIS [None]
